FAERS Safety Report 23230166 (Version 1)
Quarter: 2023Q4

REPORT INFORMATION
  Report Type: Spontaneous
  Country: US (occurrence: US)
  Receive Date: 20231127
  Receipt Date: 20231127
  Transmission Date: 20240110
  Serious: Yes (Other)
  Sender: FDA-Public Use
  Company Number: US-BEH-2023165668

PATIENT
  Age: 19 Year
  Sex: Male

DRUGS (6)
  1. IDELVION [Suspect]
     Active Substance: COAGULATION FACTOR IX RECOMBINANT HUMAN
     Indication: Factor IX deficiency
     Dosage: 3165-3798 UNITS, QW
     Route: 042
     Dates: start: 202202, end: 20231014
  2. IDELVION [Suspect]
     Active Substance: COAGULATION FACTOR IX RECOMBINANT HUMAN
     Indication: Factor IX deficiency
     Dosage: 3165-3798 UNITS, QW
     Route: 042
     Dates: start: 202202, end: 20231014
  3. IDELVION [Suspect]
     Active Substance: COAGULATION FACTOR IX RECOMBINANT HUMAN
     Indication: Prophylaxis
     Dosage: 3165-3798 UNITS, PRN
     Route: 042
     Dates: start: 202202, end: 20231014
  4. IDELVION [Suspect]
     Active Substance: COAGULATION FACTOR IX RECOMBINANT HUMAN
     Indication: Prophylaxis
     Dosage: 3165-3798 UNITS, PRN
     Route: 042
     Dates: start: 202202, end: 20231014
  5. IDELVION [Suspect]
     Active Substance: COAGULATION FACTOR IX RECOMBINANT HUMAN
     Indication: Haemorrhage
     Dosage: 6330-7596 UNITS, PRN
     Route: 042
     Dates: start: 202202
  6. IDELVION [Suspect]
     Active Substance: COAGULATION FACTOR IX RECOMBINANT HUMAN
     Indication: Haemorrhage
     Dosage: 6330-7596 UNITS, PRN
     Route: 042
     Dates: start: 202202

REACTIONS (1)
  - Haemarthrosis [Not Recovered/Not Resolved]
